FAERS Safety Report 9018771 (Version 4)
Quarter: 2013Q4

REPORT INFORMATION
  Report Type: Spontaneous
  Country: GB (occurrence: GB)
  Receive Date: 20130118
  Receipt Date: 20131029
  Transmission Date: 20140711
  Serious: Yes (Other)
  Sender: FDA-Public Use
  Company Number: GB-PFIZER INC-2013015869

PATIENT
  Age: 74 Year
  Sex: Female
  Weight: 83 kg

DRUGS (7)
  1. METHOTREXATE SODIUM [Suspect]
     Indication: RHEUMATOID ARTHRITIS
     Dosage: 15MG
     Route: 048
     Dates: start: 201006, end: 201202
  2. TRIMETHOPRIM [Interacting]
     Indication: KIDNEY INFECTION
     Dosage: 200 MG, 2X/DAY
     Route: 048
     Dates: start: 20120221, end: 20120228
  3. FOLIC ACID [Suspect]
     Indication: RHEUMATOID ARTHRITIS
     Dosage: 2 DF, WEEKLY
     Route: 048
     Dates: start: 201006, end: 201202
  4. CELEBREX [Concomitant]
     Indication: INFLAMMATION
     Dosage: UNK
     Route: 048
     Dates: start: 201207, end: 201207
  5. CIMZIA [Concomitant]
     Dosage: UNK
  6. FISH OIL [Concomitant]
     Dosage: UNK
  7. ROACTEMIRA [Interacting]
     Dosage: 2 INFUSIONS

REACTIONS (1)
  - Drug interaction [Recovered/Resolved]
